FAERS Safety Report 4472702-2 (Version None)
Quarter: 2004Q4

REPORT INFORMATION
  Report Type: 
  Country: None (occurrence: None)
  Receive Date: 20041012
  Receipt Date: 20041012
  Transmission Date: 20050328
  Serious: Yes (Life-Threatening, Hospitalization)
  Sender: FDA-Public Use
  Company Number: None

PATIENT
  Age: 78 Year
  Sex: Female
  Weight: 113 kg

DRUGS (2)
  1. ENALAPRIL MALEATE [Suspect]
     Dosage: 20 MG PO DAILY
     Route: 048
  2. NIFEDIPINE [Concomitant]

REACTIONS (2)
  - ANGIONEUROTIC OEDEMA [None]
  - OBSTRUCTIVE AIRWAYS DISORDER [None]
